FAERS Safety Report 6452908-3 (Version None)
Quarter: 2009Q4

REPORT INFORMATION
  Report Type: 
  Country: None (occurrence: None)
  Receive Date: 20091124
  Receipt Date: 20081124
  Transmission Date: 20100525
  Serious: No
  Sender: FDA-Public Use
  Company Number: US-ABBOTT-08P-163-0489858-00

PATIENT
  Sex: Female
  Weight: 60.382 kg

DRUGS (2)
  1. TRICOR [Suspect]
     Indication: LOW DENSITY LIPOPROTEIN INCREASED
     Dates: start: 20081023, end: 20081103
  2. TRICOR [Suspect]
     Dates: start: 20081108

REACTIONS (2)
  - ABDOMINAL DISTENSION [None]
  - FLATULENCE [None]
